FAERS Safety Report 11653011 (Version 2)
Quarter: 2015Q4

REPORT INFORMATION
  Report Type: Spontaneous
  Country: US (occurrence: US)
  Receive Date: 20151022
  Receipt Date: 20151030
  Transmission Date: 20160304
  Serious: Yes (Other)
  Sender: FDA-Public Use
  Company Number: US-ASTRAZENECA-2015SF01904

PATIENT
  Age: 789 Month
  Sex: Female
  Weight: 41.7 kg

DRUGS (20)
  1. ATORVASTATIN [Concomitant]
     Active Substance: ATORVASTATIN
     Route: 048
  2. AROMASIN [Suspect]
     Active Substance: EXEMESTANE
     Indication: BREAST CANCER
     Route: 048
     Dates: start: 20150707
  3. SENOKOT-S [Concomitant]
     Active Substance: DOCUSATE SODIUM\SENNOSIDES
     Indication: CONSTIPATION
  4. OSTEO BI-FLEX [Concomitant]
     Active Substance: CHONDROITIN SULFATE A\GLUCOSAMINE
     Dosage: 250-200 MG, 1 DF DAILY
     Route: 048
  5. DEXAMETHASONE. [Concomitant]
     Active Substance: DEXAMETHASONE
     Dosage: 0.5 MG/5 ML
     Route: 048
  6. ARIMIDEX [Suspect]
     Active Substance: ANASTROZOLE
     Indication: BREAST CANCER
     Route: 048
     Dates: start: 20130523
  7. CARAFATE [Concomitant]
     Active Substance: SUCRALFATE
     Route: 048
     Dates: start: 20140430
  8. S-ADENOSYLMETHIONINE SULFATE P-TOLUENESULFONATE [Concomitant]
     Active Substance: ADEMETIONINE SULFATE TOSILATE
     Route: 048
     Dates: start: 20111110
  9. POTASSIUM CHLORIDE. [Concomitant]
     Active Substance: POTASSIUM CHLORIDE
     Route: 048
     Dates: start: 20131015
  10. AROMASIN [Suspect]
     Active Substance: EXEMESTANE
     Indication: BREAST CANCER
     Route: 048
     Dates: end: 20130325
  11. AFINITOR [Suspect]
     Active Substance: EVEROLIMUS
     Indication: BREAST CANCER
     Route: 048
     Dates: start: 20150707
  12. TRAMADOL. [Concomitant]
     Active Substance: TRAMADOL
     Dosage: 1-2 TABLET EVERY SIX HOURS
     Route: 048
     Dates: start: 20150324
  13. EVEROLIMUS [Concomitant]
     Active Substance: EVEROLIMUS
     Route: 048
     Dates: start: 20150324
  14. CELEXA [Concomitant]
     Active Substance: CITALOPRAM HYDROBROMIDE
     Route: 048
  15. ONE A DAY [Concomitant]
     Route: 048
  16. AFINITOR [Suspect]
     Active Substance: EVEROLIMUS
     Indication: BREAST CANCER
     Route: 048
     Dates: start: 20130731, end: 20150505
  17. LEVOFLOXACIN. [Concomitant]
     Active Substance: LEVOFLOXACIN
     Route: 048
  18. FASLODEX [Suspect]
     Active Substance: FULVESTRANT
     Indication: BREAST CANCER
     Route: 030
     Dates: start: 20130325, end: 20150421
  19. EVEROLIMUS [Concomitant]
     Active Substance: EVEROLIMUS
     Route: 048
     Dates: start: 20141125
  20. NEXIUM [Concomitant]
     Active Substance: ESOMEPRAZOLE MAGNESIUM
     Route: 048
     Dates: start: 20141126

REACTIONS (8)
  - Diarrhoea [Unknown]
  - Adverse event [Unknown]
  - Swelling [Unknown]
  - Drug intolerance [Unknown]
  - Malignant neoplasm progression [Unknown]
  - Musculoskeletal pain [Unknown]
  - Injection site pain [Unknown]
  - Breast cancer metastatic [None]

NARRATIVE: CASE EVENT DATE: 201307
